FAERS Safety Report 21869616 (Version 6)
Quarter: 2025Q3

REPORT INFORMATION
  Report Type: Spontaneous
  Country: CA (occurrence: CA)
  Receive Date: 20230117
  Receipt Date: 20250730
  Transmission Date: 20251020
  Serious: Yes (Hospitalization)
  Sender: INTERCEPT PHARMACEUTICALS
  Company Number: CA-ADVANZ PHARMA-202301000066

PATIENT
  Age: 67 Year
  Sex: Female

DRUGS (2)
  1. OCALIVA [Suspect]
     Active Substance: OBETICHOLIC ACID
     Indication: Primary biliary cholangitis
     Dosage: 10 MG, QD (OCALIVA)
     Route: 048
     Dates: start: 20171020
  2. GABAPENTIN [Suspect]
     Active Substance: GABAPENTIN
     Indication: Product used for unknown indication

REACTIONS (5)
  - Hospitalisation [Unknown]
  - Pain [Unknown]
  - Withdrawal syndrome [Unknown]
  - Gamma-glutamyltransferase abnormal [Recovered/Resolved]
  - Blood alkaline phosphatase abnormal [Not Recovered/Not Resolved]

NARRATIVE: CASE EVENT DATE: 20221201
